FAERS Safety Report 15734930 (Version 1)
Quarter: 2018Q4

REPORT INFORMATION
  Report Type: Spontaneous
  Country: US (occurrence: US)
  Receive Date: 20181203
  Receipt Date: 20181203
  Transmission Date: 20190205
  Serious: Yes (Disabling, Other)
  Sender: FDA-Public Use
  Company Number: None

PATIENT
  Age: 70 Year
  Sex: Male
  Weight: 77.11 kg

DRUGS (1)
  1. AMIODARONE [Suspect]
     Active Substance: AMIODARONE
     Indication: HEART RATE INCREASED
     Dosage: ?          QUANTITY:1 DF DOSAGE FORM;OTHER FREQUENCY:ONCE DAILY;?
     Route: 048
     Dates: start: 20160301, end: 20161102

REACTIONS (1)
  - Optic nerve injury [None]

NARRATIVE: CASE EVENT DATE: 20161102
